FAERS Safety Report 6831605-6 (Version None)
Quarter: 2010Q3

REPORT INFORMATION
  Report Type: 
  Country: None (occurrence: None)
  Receive Date: 20100712
  Receipt Date: 20100701
  Transmission Date: 20110219
  Serious: Yes (Other)
  Sender: FDA-Public Use
  Company Number: PHHY2010SE43746

PATIENT
  Sex: Male

DRUGS (2)
  1. RITALIN [Suspect]
     Indication: ATTENTION DEFICIT/HYPERACTIVITY DISORDER
     Dosage: 10 MG, TID
     Dates: start: 20000101
  2. RITALIN [Suspect]
     Dosage: 60 MG, TID

REACTIONS (3)
  - AGGRESSION [None]
  - ANGER [None]
  - INTENTIONAL OVERDOSE [None]
